FAERS Safety Report 14907632 (Version 1)
Quarter: 2018Q2

REPORT INFORMATION
  Report Type: Report from Study
  Country: CN (occurrence: CN)
  Receive Date: 20180517
  Receipt Date: 20180517
  Transmission Date: 20180711
  Serious: Yes (Other)
  Sender: FDA-Public Use
  Company Number: CN-ROCHE-2122178

PATIENT

DRUGS (2)
  1. OXALIPLATIN. [Suspect]
     Active Substance: OXALIPLATIN
     Indication: COLORECTAL CANCER
     Dosage: AT THE FIRST DATE OF THE CHEMOTHERAPY
     Route: 041
  2. CAPECITABINE. [Suspect]
     Active Substance: CAPECITABINE
     Indication: COLORECTAL CANCER
     Dosage: TOTAL 1000MG/M2/D, DIVIDED IN TWO TIMES
     Route: 048

REACTIONS (6)
  - Hepatic function abnormal [Unknown]
  - Stomatitis [Unknown]
  - Bone marrow failure [Unknown]
  - Palmar-plantar erythrodysaesthesia syndrome [Unknown]
  - Renal impairment [Unknown]
  - Gastrointestinal toxicity [Unknown]
